FAERS Safety Report 8044009-8 (Version None)
Quarter: 2012Q1

REPORT INFORMATION
  Report Type: 
  Country: None (occurrence: None)
  Receive Date: 20120113
  Receipt Date: 20120104
  Transmission Date: 20120608
  Serious: Yes (Hospitalization, Other)
  Sender: FDA-Public Use
  Company Number: FR-ELI_LILLY_AND_COMPANY-FR201201000773

PATIENT
  Age: 35 Year
  Sex: Female

DRUGS (2)
  1. CYMBALTA [Suspect]
     Indication: DEPRESSION
     Dosage: UNK, UNKNOWN
     Route: 048
     Dates: start: 20100601, end: 20101207
  2. VICTAN [Concomitant]
     Dosage: 2 MG, UNK
     Route: 048
     Dates: start: 20100601

REACTIONS (5)
  - MITRAL VALVE INCOMPETENCE [None]
  - PULMONARY ARTERIAL HYPERTENSION [None]
  - INFECTION [None]
  - BUNDLE BRANCH BLOCK LEFT [None]
  - CONGESTIVE CARDIOMYOPATHY [None]
